FAERS Safety Report 15598414 (Version 2)
Quarter: 2018Q4

REPORT INFORMATION
  Report Type: Spontaneous
  Country: US (occurrence: US)
  Receive Date: 20181108
  Receipt Date: 20181221
  Transmission Date: 20190205
  Serious: No
  Sender: FDA-Public Use
  Company Number: US-TRIS PHARMA, INC.-2018TRISPO00719

PATIENT

DRUGS (2)
  1. QUILLIVANT XR [Suspect]
     Active Substance: METHYLPHENIDATE HYDROCHLORIDE
     Indication: ATTENTION DEFICIT/HYPERACTIVITY DISORDER
     Dosage: 6 ML, ONCE A DAY, MONDAY TO FRIDAY
     Route: 065
     Dates: start: 20180815
  2. QUILLIVANT XR [Suspect]
     Active Substance: METHYLPHENIDATE HYDROCHLORIDE
     Dosage: INCREASED TO 7 ML, UNK
     Route: 065
     Dates: end: 20180918

REACTIONS (8)
  - Feeling abnormal [Recovered/Resolved]
  - Irritability [Recovered/Resolved]
  - Mood altered [Recovered/Resolved]
  - Mutism [Recovered/Resolved]
  - Decreased appetite [Recovered/Resolved]
  - Somnolence [Recovered/Resolved]
  - Anxiety [Recovered/Resolved]
  - Drug ineffective [Unknown]

NARRATIVE: CASE EVENT DATE: 201808
